FAERS Safety Report 4441466-0 (Version None)
Quarter: 2004Q3

REPORT INFORMATION
  Report Type: 
  Country: None (occurrence: None)
  Receive Date: 20040728
  Receipt Date: 20040405
  Transmission Date: 20050211
  Serious: No
  Sender: FDA-Public Use
  Company Number: USA040464128

PATIENT
  Age: 7 Year
  Sex: Male
  Weight: 23 kg

DRUGS (3)
  1. STRATTERA [Suspect]
     Dosage: 25 MG DAY
     Dates: start: 20040201
  2. SINGULAIR [Concomitant]
  3. ADVAIR DISKUS 100/50 [Concomitant]

REACTIONS (5)
  - BELLIGERENCE [None]
  - CRYING [None]
  - DRUG INEFFECTIVE [None]
  - FATIGUE [None]
  - MOOD SWINGS [None]
